FAERS Safety Report 13044603 (Version 1)
Quarter: 2016Q4

REPORT INFORMATION
  Report Type: Spontaneous
  Country: US (occurrence: US)
  Receive Date: 20161220
  Receipt Date: 20161220
  Transmission Date: 20170207
  Serious: Yes (Other)
  Sender: FDA-Public Use
  Company Number: US-ROCHE-1019345

PATIENT
  Sex: Female
  Weight: 56.3 kg

DRUGS (1)
  1. ZELBORAF [Suspect]
     Active Substance: VEMURAFENIB
     Indication: METASTATIC MALIGNANT MELANOMA
     Route: 048
     Dates: start: 201109

REACTIONS (15)
  - Alopecia [Unknown]
  - Squamous cell carcinoma [Unknown]
  - Diarrhoea [Not Recovered/Not Resolved]
  - Dysgeusia [Unknown]
  - Melanocytic naevus [Unknown]
  - Arthralgia [Unknown]
  - Rash [Unknown]
  - Skin papilloma [Unknown]
  - Pruritus [Unknown]
  - Swelling [Unknown]
  - Fatigue [Unknown]
  - Hyperkeratosis [Unknown]
  - Chills [Unknown]
  - Weight decreased [Unknown]
  - Asthenia [Unknown]
